FAERS Safety Report 17466697 (Version 1)
Quarter: 2020Q1

REPORT INFORMATION
  Report Type: Spontaneous
  Country: US (occurrence: US)
  Receive Date: 20200214
  Receipt Date: 20200214
  Transmission Date: 20200409
  Serious: No
  Sender: FDA-Public Use
  Company Number: None

PATIENT
  Age: 32 Year
  Sex: Female

DRUGS (6)
  1. ESTARYLLA [Concomitant]
     Active Substance: ETHINYL ESTRADIOL\NORGESTIMATE
  2. MAVYRET [Suspect]
     Active Substance: GLECAPREVIR\PIBRENTASVIR
     Indication: CHRONIC HEPATITIS C
     Dosage: ?          OTHER DOSE:100-40MG;OTHER FREQUENCY:3 PO QD ;?
     Route: 048
     Dates: start: 20191204
  3. TRAZODONE HYDROCHLORIDE. [Concomitant]
     Active Substance: TRAZODONE HYDROCHLORIDE
  4. PRENATAL [Concomitant]
     Active Substance: VITAMINS
  5. GABAPENTIN. [Concomitant]
     Active Substance: GABAPENTIN
  6. SUBOXONE [Concomitant]
     Active Substance: BUPRENORPHINE HYDROCHLORIDE\NALOXONE HYDROCHLORIDE

REACTIONS (3)
  - Maternal exposure during pregnancy [None]
  - Menorrhagia [None]
  - Foetal exposure during pregnancy [None]

NARRATIVE: CASE EVENT DATE: 20200214
